FAERS Safety Report 9253239 (Version 1)
Quarter: 2013Q2

REPORT INFORMATION
  Report Type: Spontaneous
  Country: IT (occurrence: IT)
  Receive Date: 20130424
  Receipt Date: 20130424
  Transmission Date: 20140414
  Serious: Yes (Death)
  Sender: FDA-Public Use
  Company Number: IT-BAXTER-2013BAX014430

PATIENT
  Sex: Male

DRUGS (4)
  1. GLUCOSIO 5% BAXTER [Suspect]
     Indication: MEDICATION DILUTION
     Route: 042
     Dates: start: 20130225, end: 20130225
  2. OXALIPLATIN [Suspect]
     Indication: PRODUCT USED FOR UNKNOWN INDICATION
     Route: 042
     Dates: start: 20130225, end: 20130225
  3. FLUOROURACIL [Suspect]
     Indication: PRODUCT USED FOR UNKNOWN INDICATION
     Route: 040
     Dates: start: 20130225, end: 20130225
  4. LEDERFOLIN [Concomitant]
     Indication: PRODUCT USED FOR UNKNOWN INDICATION
     Route: 065

REACTIONS (3)
  - Vomiting [Fatal]
  - Diarrhoea [Fatal]
  - Pyrexia [Fatal]
